FAERS Safety Report 21202247 (Version 1)
Quarter: 2022Q3

REPORT INFORMATION
  Report Type: Spontaneous
  Country: US (occurrence: None)
  Receive Date: 20220811
  Receipt Date: 20220811
  Transmission Date: 20221027
  Serious: Yes (Other)
  Sender: FDA-Public Use
  Company Number: None

PATIENT
  Age: 70 Year
  Sex: Female
  Weight: 105.75 kg

DRUGS (11)
  1. TUMS [Suspect]
     Active Substance: CALCIUM CARBONATE
     Indication: Gastrooesophageal reflux disease
     Dosage: OTHER QUANTITY : 2 TABLET(S);?FREQUENCY : AT BEDTIME;?
     Route: 048
     Dates: start: 20220619, end: 20220802
  2. BISOPROLOL [Concomitant]
     Active Substance: BISOPROLOL
  3. LEVOTHYROXINE [Concomitant]
     Active Substance: LEVOTHYROXINE
  4. FAMOTIDINE [Concomitant]
     Active Substance: FAMOTIDINE
  5. AMLODIPINE [Concomitant]
     Active Substance: AMLODIPINE BESYLATE
  6. LORATADINE [Concomitant]
     Active Substance: LORATADINE
  7. ALBUTEROL [Concomitant]
     Active Substance: ALBUTEROL
  8. MECLIZINE [Concomitant]
  9. MULTI-VITAMIN/MINERALS [Concomitant]
  10. CHOLECALCIFEROL [Concomitant]
     Active Substance: CHOLECALCIFEROL
  11. ACETAMINOPHEN [Concomitant]
     Active Substance: ACETAMINOPHEN

REACTIONS (4)
  - Product substitution issue [None]
  - Faeces discoloured [None]
  - Diarrhoea [None]
  - Mental disorder [None]

NARRATIVE: CASE EVENT DATE: 20220801
